FAERS Safety Report 14194045 (Version 2)
Quarter: 2018Q1

REPORT INFORMATION
  Report Type: Report from Study
  Country: AU (occurrence: AU)
  Receive Date: 20171116
  Receipt Date: 20180104
  Transmission Date: 20180508
  Serious: Yes (Other)
  Sender: FDA-Public Use
  Company Number: AU-TAKEDA-2017TUS023434

PATIENT
  Age: 38 Year
  Sex: Male

DRUGS (1)
  1. VEDOLIZUMAB [Suspect]
     Active Substance: VEDOLIZUMAB
     Indication: CROHN^S DISEASE
     Dosage: UNK
     Route: 065
     Dates: start: 201611

REACTIONS (3)
  - Intestinal stenosis [Unknown]
  - Therapy partial responder [Unknown]
  - Gastrointestinal stoma complication [Unknown]
